FAERS Safety Report 7556218 (Version 5)
Quarter: 2013Q2

REPORT INFORMATION
  Report Type: Spontaneous
  Country: US (occurrence: US)
  Receive Date: 20100827
  Receipt Date: 20120709
  Transmission Date: 20140414
  Serious: Yes (Other)
  Sender: FDA-Public Use
  Company Number: PHHY2010US53937

PATIENT
  Age: 60 Year
  Sex: Female
  Weight: 68 kg

DRUGS (11)
  1. GLEEVEC [Suspect]
     Indication: GASTROINTESTINAL STROMAL TUMOUR
     Dosage: 400 MG, DAILY
     Route: 048
     Dates: start: 20100105
  2. LISINOPRIL [Concomitant]
  3. CRESTOR [Concomitant]
     Dosage: 10 MG, DAILY
     Route: 048
     Dates: start: 201012
  4. IRON SUPPLEMENTS [Concomitant]
     Indication: IRON DEFICIENCY ANAEMIA
     Dosage: 1 DF, DAILY
     Route: 048
     Dates: start: 201004, end: 201105
  5. ASPIRIN [Concomitant]
     Dosage: 81 MG, UNK
  6. CALCIUM CARBONATE [Concomitant]
  7. SENNA [Concomitant]
     Route: 048
  8. XANAX [Concomitant]
     Dosage: 0.25 MG, PRN
     Route: 048
  9. FERROUS TARTRATE [Concomitant]
     Dosage: 90 MG, UNK
     Route: 048
  10. METOPROLOL TARTRATE [Concomitant]
     Dosage: 25 MG, UNK
     Route: 048
  11. VICODIN [Concomitant]
     Dosage: 500 MG, UNK
     Route: 048

REACTIONS (10)
  - HAEMATOCHEZIA [Recovered/Resolved]
  - DEFAECATION URGENCY [Unknown]
  - FREQUENT BOWEL MOVEMENTS [Unknown]
  - SKIN DISCOLOURATION [Not Recovered/Not Resolved]
  - MUSCLE SPASMS [Recovered/Resolved]
  - ABDOMINAL PAIN [Recovered/Resolved]
  - BLOOD CREATININE INCREASED [Unknown]
  - PLATELET COUNT DECREASED [Unknown]
  - NAUSEA [Recovering/Resolving]
  - CONSTIPATION [Recovering/Resolving]
